FAERS Safety Report 7821500-8 (Version None)
Quarter: 2011Q4

REPORT INFORMATION
  Report Type: 
  Country: None (occurrence: None)
  Receive Date: 20111018
  Receipt Date: 20110826
  Transmission Date: 20120403
  Serious: Yes (Hospitalization, Other)
  Sender: FDA-Public Use
  Company Number: PHHY2011DK74505

PATIENT
  Sex: Female

DRUGS (2)
  1. NILOTINIB [Interacting]
  2. SIMVASTATIN [Suspect]

REACTIONS (4)
  - WEIGHT INCREASED [None]
  - DRUG INTERACTION [None]
  - CARDIAC FAILURE [None]
  - FLUID RETENTION [None]
